FAERS Safety Report 6246046-2 (Version None)
Quarter: 2009Q2

REPORT INFORMATION
  Report Type: 
  Country: None (occurrence: None)
  Receive Date: 20090626
  Receipt Date: 20081217
  Transmission Date: 20091009
  Serious: No
  Sender: FDA-Public Use
  Company Number: A0761113A

PATIENT
  Sex: Male

DRUGS (2)
  1. IMITREX [Suspect]
     Indication: MIGRAINE
     Route: 048
  2. IMITREX [Suspect]
     Route: 058

REACTIONS (7)
  - DISABILITY [None]
  - DRUG INEFFECTIVE [None]
  - HYPERACUSIS [None]
  - HYPERHIDROSIS [None]
  - IMMOBILE [None]
  - PHOTOSENSITIVITY REACTION [None]
  - PRODUCT QUALITY ISSUE [None]
